FAERS Safety Report 13869160 (Version 2)
Quarter: 2017Q4

REPORT INFORMATION
  Report Type: Report from Study
  Country: FR (occurrence: FR)
  Receive Date: 20170815
  Receipt Date: 20171207
  Transmission Date: 20180320
  Serious: Yes (Life-Threatening, Hospitalization)
  Sender: FDA-Public Use
  Company Number: FR-ROCHE-1978255

PATIENT
  Age: 78 Year
  Sex: Female

DRUGS (11)
  1. CARBOPLATIN. [Suspect]
     Active Substance: CARBOPLATIN
     Indication: OVARIAN CANCER
     Dosage: AUC=5, D1X6 CYCLE EVERY 4 WEEK?LAST DOSE PRIOR TO EVENT ONSET 20/JUN/2016
     Route: 042
     Dates: start: 20170227, end: 20170710
  2. VALSARTAN. [Concomitant]
     Active Substance: VALSARTAN
     Route: 065
  3. PLACEBO [Suspect]
     Active Substance: UNSPECIFIED INGREDIENT
     Route: 042
     Dates: start: 20170725
  4. PLACEBO [Suspect]
     Active Substance: UNSPECIFIED INGREDIENT
     Indication: OVARIAN CANCER
     Dosage: D1 AND D15
     Route: 042
     Dates: start: 20170227, end: 20170710
  5. BEVACIZUMAB. [Suspect]
     Active Substance: BEVACIZUMAB
     Indication: OVARIAN CANCER
     Dosage: D1 AND D15 X 6 CYCLES EVERY 4 WEEK?LAST DOSE PRIOR TO EVENT ONSET 20/JUN/2016
     Route: 042
     Dates: start: 20170227, end: 20170710
  6. LASILIX [Concomitant]
     Active Substance: FUROSEMIDE
  7. TEMERIT [Concomitant]
     Active Substance: NEBIVOLOL
     Route: 065
  8. CAELYX [Suspect]
     Active Substance: DOXORUBICIN HYDROCHLORIDE
     Indication: OVARIAN CANCER
     Dosage: D1 X 6 CYCLES EVERY 4 WEEK?LAST DOSE PRIOR TO EVENT ONSET 20/JUN/2016
     Route: 042
     Dates: start: 20170227, end: 20170710
  9. LERCAN [Concomitant]
     Active Substance: LERCANIDIPINE
     Route: 065
  10. KARDEGIC [Concomitant]
     Active Substance: ASPIRIN DL-LYSINE
     Route: 065
  11. LEVOTHYROX [Concomitant]
     Active Substance: LEVOTHYROXINE
     Route: 065

REACTIONS (1)
  - Acute coronary syndrome [Recovered/Resolved]

NARRATIVE: CASE EVENT DATE: 20170708
